FAERS Safety Report 20058345 (Version 2)
Quarter: 2021Q4

REPORT INFORMATION
  Report Type: Spontaneous
  Country: US (occurrence: US)
  Receive Date: 20211111
  Receipt Date: 20211117
  Transmission Date: 20220303
  Serious: No
  Sender: FDA-Public Use
  Company Number: US-PFIZER INC-202101253297

PATIENT
  Age: 73 Year
  Sex: Female

DRUGS (1)
  1. XELJANZ XR [Suspect]
     Active Substance: TOFACITINIB CITRATE
     Dosage: 11 MG
     Dates: start: 202108

REACTIONS (7)
  - Pain [Not Recovered/Not Resolved]
  - Arthralgia [Unknown]
  - Hypokinesia [Unknown]
  - Mobility decreased [Unknown]
  - Pain in extremity [Unknown]
  - Foot deformity [Unknown]
  - Feeling abnormal [Unknown]
